FAERS Safety Report 5503129-X (Version None)
Quarter: 2007Q4

REPORT INFORMATION
  Report Type: 
  Country: None (occurrence: None)
  Receive Date: 20071029
  Receipt Date: 20071029
  Transmission Date: 20080405
  Serious: Yes (Hospitalization)
  Sender: FDA-Public Use
  Company Number: None

PATIENT
  Sex: Male
  Weight: 62.9 kg

DRUGS (6)
  1. CYTARABINE [Suspect]
     Dosage: 70 MG
  2. DAUNORUBICIN HCL [Suspect]
     Dosage: 172 MG
  3. METHOTREXATE [Suspect]
     Dosage: 30 MG
  4. PEG-L-ASPARAGINASE (K-H) [Suspect]
     Dosage: 4300 IU
  5. PREDNISONE TAB [Suspect]
     Dosage: 2800 MG
  6. VINCRISTINE SULFATE [Suspect]
     Dosage: 8 MG

REACTIONS (9)
  - COLITIS [None]
  - CONSTIPATION [None]
  - FAECALOMA [None]
  - GASTRITIS [None]
  - GASTROINTESTINAL NECROSIS [None]
  - INAPPROPRIATE ANTIDIURETIC HORMONE SECRETION [None]
  - NEUTROPENIA [None]
  - OESOPHAGEAL CANDIDIASIS [None]
  - PYREXIA [None]
